FAERS Safety Report 6010620-9 (Version None)
Quarter: 2008Q4

REPORT INFORMATION
  Report Type: 
  Country: None (occurrence: None)
  Receive Date: 20081218
  Receipt Date: 20080409
  Transmission Date: 20090506
  Serious: Yes (Other)
  Sender: FDA-Public Use
  Company Number: US-AMGEN-QUU273874

PATIENT
  Sex: Female

DRUGS (2)
  1. ENBREL [Suspect]
     Indication: PSORIATIC ARTHROPATHY
     Route: 058
     Dates: start: 20070129
  2. ENBREL [Suspect]
     Indication: PSORIASIS

REACTIONS (10)
  - ARTHRALGIA [None]
  - DEPRESSION [None]
  - DIZZINESS [None]
  - DRUG INEFFECTIVE [None]
  - GAIT DISTURBANCE [None]
  - LACRIMATION INCREASED [None]
  - NEUROPATHY PERIPHERAL [None]
  - OCULAR HYPERAEMIA [None]
  - VISION BLURRED [None]
  - VISUAL ACUITY REDUCED [None]
